FAERS Safety Report 7685341-7 (Version None)
Quarter: 2011Q3

REPORT INFORMATION
  Report Type: 
  Country: None (occurrence: None)
  Receive Date: 20110816
  Receipt Date: 20100201
  Transmission Date: 20111222
  Serious: No
  Sender: FDA-Public Use
  Company Number: US-BAYER-201013016NA

PATIENT
  Age: 49 Year
  Sex: Female

DRUGS (2)
  1. MIRENA [Suspect]
     Indication: CONTRACEPTION
     Route: 015
     Dates: start: 20091123, end: 20091124
  2. ANTIBIOTICS [Concomitant]
     Dosage: CONSUMER HAD STARTED THE ANTIBIOTICS BEFORE HAVING THE MIRENA INSERTED

REACTIONS (3)
  - MALAISE [None]
  - DRUG HYPERSENSITIVITY [None]
  - RASH [None]
